FAERS Safety Report 14144007 (Version 6)
Quarter: 2018Q2

REPORT INFORMATION
  Report Type: Report from Study
  Country: None (occurrence: BE)
  Receive Date: 20171031
  Receipt Date: 20180618
  Transmission Date: 20180711
  Serious: Yes (Hospitalization)
  Sender: FDA-Public Use
  Company Number: BE-ABBVIE-17K-013-2145687-00

PATIENT
  Age: 69 Year
  Sex: Male

DRUGS (12)
  1. STALEVO [Concomitant]
     Active Substance: CARBIDOPA\ENTACAPONE\LEVODOPA
     Indication: PRODUCT USED FOR UNKNOWN INDICATION
     Dosage: FORM STRENGTH: 200MG/50MG/200MG
  2. STALEVO [Concomitant]
     Active Substance: CARBIDOPA\ENTACAPONE\LEVODOPA
     Dosage: FORM STRENGTH: 200MG/50MG/200MG
  3. DUODOPA [Suspect]
     Active Substance: CARBIDOPA\LEVODOPA
     Dosage: MD=4ML??CD=2.6ML/HR DURING 16HRS ??EDA=1.1ML
     Route: 050
     Dates: start: 20171027, end: 20171030
  4. DUODOPA [Suspect]
     Active Substance: CARBIDOPA\LEVODOPA
     Dosage: MD: 4ML, CD:2.6ML/H (MAX 5ML/H) FOR 16HRS; EDA: 1.1ML (MAX 3ML)
     Route: 050
     Dates: start: 20171030, end: 20180118
  5. DUODOPA [Suspect]
     Active Substance: CARBIDOPA\LEVODOPA
     Dosage: MD=1.5ML?CD=2.4ML/HR DURING 16HRS?ED=1.5ML
     Route: 050
     Dates: start: 20180118
  6. DUODOPA [Suspect]
     Active Substance: CARBIDOPA\LEVODOPA
     Dosage: MD=4ML??CD=2.6ML/HR DURING 16HRS ??EDA=1.1ML
     Route: 050
     Dates: start: 20170220, end: 20171027
  7. AMANTADINE. [Concomitant]
     Active Substance: AMANTADINE HYDROCHLORIDE
     Indication: PRODUCT USED FOR UNKNOWN INDICATION
  8. STALEVO [Concomitant]
     Active Substance: CARBIDOPA\ENTACAPONE\LEVODOPA
     Indication: PRODUCT USED FOR UNKNOWN INDICATION
     Dosage: FORM STRENGTH: 150MG/37.5MG/200MG
  9. DUODOPA [Suspect]
     Active Substance: CARBIDOPA\LEVODOPA
     Indication: PARKINSON^S DISEASE
     Dosage: MD=4.5ML??CD=2.4ML/HR DURING 16HRS ??EDA=1.2ML
     Route: 050
     Dates: start: 20160201, end: 20170220
  10. STALEVO [Concomitant]
     Active Substance: CARBIDOPA\ENTACAPONE\LEVODOPA
     Dosage: FORM STRENGTH: 150MG/37.5MG/200MG
  11. STALEVO [Concomitant]
     Active Substance: CARBIDOPA\ENTACAPONE\LEVODOPA
     Indication: PRODUCT USED FOR UNKNOWN INDICATION
     Dosage: FORM STRENGTH: 100MG/25MG/200MG
  12. SIPRALEXA [Concomitant]
     Active Substance: ESCITALOPRAM OXALATE
     Indication: PRODUCT USED FOR UNKNOWN INDICATION

REACTIONS (5)
  - Intentional medical device removal by patient [Recovered/Resolved]
  - Device battery issue [Recovered/Resolved]
  - Incorrect route of drug administration [Unknown]
  - Dementia [Not Recovered/Not Resolved]
  - Dementia with Lewy bodies [Unknown]

NARRATIVE: CASE EVENT DATE: 20171027
